FAERS Safety Report 10103278 (Version 1)
Quarter: 2014Q2

REPORT INFORMATION
  Report Type: Spontaneous
  Country: FR (occurrence: FR)
  Receive Date: 20140424
  Receipt Date: 20140424
  Transmission Date: 20141212
  Serious: Yes (Hospitalization)
  Sender: FDA-Public Use
  Company Number: FR-GLAXOSMITHKLINE-B0988400A

PATIENT
  Age: 80 Year
  Sex: Female

DRUGS (2)
  1. SORIATANE [Suspect]
     Indication: PSORIASIS
     Dosage: 35MG PER DAY
     Route: 048
  2. PARACETAMOL [Concomitant]
     Route: 065

REACTIONS (2)
  - Tongue oedema [Unknown]
  - Face oedema [Unknown]
